FAERS Safety Report 13125164 (Version 10)
Quarter: 2017Q4

REPORT INFORMATION
  Report Type: Spontaneous
  Country: CA (occurrence: CA)
  Receive Date: 20170118
  Receipt Date: 20171116
  Transmission Date: 20180320
  Serious: Yes (Hospitalization, Other)
  Sender: FDA-Public Use
  Company Number: CA-PFIZER INC-2016410634

PATIENT
  Age: 65 Year
  Sex: Female

DRUGS (2)
  1. LOSEC [Concomitant]
     Active Substance: OMEPRAZOLE
     Dosage: UNK
  2. XELJANZ [Suspect]
     Active Substance: TOFACITINIB CITRATE
     Indication: RHEUMATOID ARTHRITIS
     Dosage: 5 MG, 2X/DAY
     Route: 048
     Dates: start: 20160710, end: 20170612

REACTIONS (17)
  - Localised infection [Not Recovered/Not Resolved]
  - Nasopharyngitis [Recovered/Resolved]
  - Cardiac failure congestive [Unknown]
  - Oesophageal perforation [Unknown]
  - Cough [Recovered/Resolved]
  - Erythema [Unknown]
  - Immune system disorder [Unknown]
  - Condition aggravated [Unknown]
  - Cardiac disorder [Not Recovered/Not Resolved]
  - Pneumonia [Not Recovered/Not Resolved]
  - Lung infection [Not Recovered/Not Resolved]
  - Hiatus hernia [Not Recovered/Not Resolved]
  - Osteogenesis imperfecta [Not Recovered/Not Resolved]
  - Eye infection [Not Recovered/Not Resolved]
  - Cystitis [Not Recovered/Not Resolved]
  - Peripheral swelling [Unknown]
  - Influenza [Recovered/Resolved]

NARRATIVE: CASE EVENT DATE: 20170202
